FAERS Safety Report 10070076 (Version 2)
Quarter: 2014Q2

REPORT INFORMATION
  Report Type: Spontaneous
  Country: ES (occurrence: ES)
  Receive Date: 20140410
  Receipt Date: 20140410
  Transmission Date: 20141212
  Serious: Yes (Life-Threatening, Hospitalization)
  Sender: FDA-Public Use
  Company Number: ES-009507513-1403ESP007725

PATIENT
  Age: 90 Year
  Sex: Female

DRUGS (5)
  1. ACOXXEL 60 MG COMPRIMIDOS RECUBIERTOS CON PEL?CULA [Suspect]
     Indication: BACK PAIN
     Dosage: 60 MG, QD, 1COMP/24H
     Route: 048
     Dates: start: 20140204, end: 20140204
  2. ADROVANCE [Suspect]
     Indication: PELVIC FRACTURE
     Dosage: 70MG/2.800 UI, 4 COMPRIMIDOS, STRENGTH
     Route: 048
     Dates: start: 201103
  3. NOLOTIL [Suspect]
     Indication: PAIN
     Dosage: UNK
     Route: 048
     Dates: start: 20140128
  4. PRITOR PLUS [Concomitant]
     Indication: PAIN
     Dosage: UNK
  5. OMEPRAZOLE [Concomitant]
     Dosage: UNK
     Route: 048

REACTIONS (5)
  - Melaena [Recovered/Resolved]
  - Ulcer haemorrhage [Recovered/Resolved]
  - Haematemesis [Recovered/Resolved]
  - Duodenal ulcer [Recovered/Resolved]
  - Gastric ulcer [Recovered/Resolved]
